FAERS Safety Report 6352826-5 (Version None)
Quarter: 2009Q3

REPORT INFORMATION
  Report Type: 
  Country: None (occurrence: None)
  Receive Date: 20090912
  Receipt Date: 20090622
  Transmission Date: 20100115
  Serious: No
  Sender: FDA-Public Use
  Company Number: US-ABBOTT-08P-163-0446160-00

PATIENT
  Sex: Female
  Weight: 71.732 kg

DRUGS (5)
  1. HUMIRA [Suspect]
     Indication: PSORIASIS
     Dosage: X TWO, LOADING DOSE
     Route: 058
     Dates: start: 20080407
  2. FLUTICASONE [Concomitant]
     Indication: PSORIASIS
     Dosage: TWICE A DAY PRN
     Route: 061
  3. GOLD BOND [Concomitant]
     Indication: PSORIASIS
     Dosage: PRN DAILY
     Route: 061
  4. NORETHISTERONE [Concomitant]
     Indication: CONTRACEPTION
     Dosage: DAILY
     Route: 048
  5. PRENATAL [Concomitant]
     Indication: BREAST FEEDING
     Dosage: TABLETS

REACTIONS (5)
  - INCORRECT DOSE ADMINISTERED [None]
  - INJECTION SITE ERYTHEMA [None]
  - INJECTION SITE EXTRAVASATION [None]
  - INJECTION SITE NODULE [None]
  - WRONG TECHNIQUE IN DRUG USAGE PROCESS [None]
